FAERS Safety Report 7085783-7 (Version None)
Quarter: 2010Q4

REPORT INFORMATION
  Report Type: 
  Country: None (occurrence: None)
  Receive Date: 20101105
  Receipt Date: 20101103
  Transmission Date: 20110411
  Serious: Yes (Hospitalization, Other)
  Sender: FDA-Public Use
  Company Number: DE-ROCHE-728331

PATIENT
  Sex: Female
  Weight: 60 kg

DRUGS (2)
  1. BONIVA [Suspect]
     Indication: OSTEOPOROSIS
     Dosage: CUMULATIVE DOSE NO (TO FIRST REACTION): 24 MG
     Route: 042
     Dates: start: 20070326, end: 20090602
  2. MITOXANTRON [Concomitant]
     Indication: MULTIPLE SCLEROSIS
     Route: 042
     Dates: start: 20070101, end: 20090101

REACTIONS (3)
  - OSTEONECROSIS OF JAW [None]
  - PAIN IN JAW [None]
  - TOOTH EXTRACTION [None]
